FAERS Safety Report 6368217-7 (Version None)
Quarter: 2009Q3

REPORT INFORMATION
  Report Type: 
  Country: None (occurrence: None)
  Receive Date: 20090922
  Receipt Date: 20090911
  Transmission Date: 20100115
  Serious: Yes (Other)
  Sender: FDA-Public Use
  Company Number: JP-BRISTOL-MYERS SQUIBB COMPANY-14784300

PATIENT
  Sex: Female

DRUGS (1)
  1. ABILIFY [Suspect]
     Dosage: CURRENTLY TAKING 12MG/DAY(ORAL)-REGIMEN 2
     Route: 048

REACTIONS (2)
  - ABORTION [None]
  - PREGNANCY [None]
